FAERS Safety Report 10968448 (Version 1)
Quarter: 2015Q1

REPORT INFORMATION
  Report Type: Spontaneous
  Country: TR (occurrence: TR)
  Receive Date: 20150330
  Receipt Date: 20150330
  Transmission Date: 20150721
  Serious: Yes (Other)
  Sender: FDA-Public Use
  Company Number: PHHY2015TR033467

PATIENT
  Age: 45 Year
  Sex: Female

DRUGS (1)
  1. VOLTAREN [Suspect]
     Active Substance: DICLOFENAC SODIUM
     Indication: HEADACHE
     Route: 030

REACTIONS (12)
  - Blister [Unknown]
  - Eschar [Unknown]
  - Staphylococcal infection [Unknown]
  - Skin discolouration [Unknown]
  - Oedema [Unknown]
  - Scar [Unknown]
  - Skin ulcer [Recovered/Resolved]
  - Erythema [Recovering/Resolving]
  - Pain of skin [Unknown]
  - Skin necrosis [Unknown]
  - Embolia cutis medicamentosa [Recovering/Resolving]
  - Haemorrhage [Unknown]
